FAERS Safety Report 8085763 (Version 3)
Quarter: 2013Q3

REPORT INFORMATION
  Report Type: Report from Study
  Country: BR (occurrence: BR)
  Receive Date: 20110811
  Receipt Date: 20130729
  Transmission Date: 20140515
  Serious: Yes (Death, Hospitalization, Other)
  Sender: FDA-Public Use
  Company Number: BR-ABBOTT-11P-020-0845104-00

PATIENT
  Age: 66 Year
  Sex: Male

DRUGS (2)
  1. HUMIRA [Suspect]
     Indication: RHEUMATOID ARTHRITIS
     Route: 058
     Dates: start: 20100202
  2. METHOTREXATE [Concomitant]
     Indication: PRODUCT USED FOR UNKNOWN INDICATION

REACTIONS (8)
  - Prostate cancer [Fatal]
  - Pneumonia [Fatal]
  - Cardiac disorder [Unknown]
  - Gastritis [Unknown]
  - Ulcer [Unknown]
  - Prostatic specific antigen increased [Unknown]
  - Influenza [Not Recovered/Not Resolved]
  - Influenza [Unknown]
